FAERS Safety Report 8007090-8 (Version None)
Quarter: 2011Q4

REPORT INFORMATION
  Report Type: 
  Country: None (occurrence: None)
  Receive Date: 20111227
  Receipt Date: 20111220
  Transmission Date: 20120403
  Serious: Yes (Hospitalization, Other)
  Sender: FDA-Public Use
  Company Number: NL-JNJFOC-20111209500

PATIENT
  Sex: Female
  Weight: 93.21 kg

DRUGS (8)
  1. VINCRISTINE [Suspect]
     Indication: B-CELL LYMPHOMA
     Route: 058
     Dates: start: 20110907
  2. PREDNISONE TAB [Suspect]
     Indication: B-CELL LYMPHOMA
     Route: 048
     Dates: start: 20110907
  3. COTRIM [Concomitant]
     Route: 065
     Dates: start: 20110907
  4. DOXORUBICIN HCL [Suspect]
     Indication: B-CELL LYMPHOMA
     Route: 042
     Dates: start: 20110907
  5. VALACYCLOVIR HYDROCHLORIDE [Concomitant]
     Route: 065
     Dates: start: 20110907
  6. RITUXIMAB [Suspect]
     Indication: B-CELL LYMPHOMA
     Route: 042
     Dates: start: 20110908
  7. CYCLOPHOSPHAMIDE [Suspect]
     Indication: B-CELL LYMPHOMA
     Route: 042
     Dates: start: 20110907
  8. NEUPOGEN [Suspect]
     Indication: B-CELL LYMPHOMA
     Route: 058
     Dates: start: 20110909

REACTIONS (2)
  - HYPOKALAEMIA [None]
  - GASTROENTERITIS VIRAL [None]
